FAERS Safety Report 5749894-8 (Version None)
Quarter: 2008Q2

REPORT INFORMATION
  Report Type: 
  Country: None (occurrence: None)
  Receive Date: 20080527
  Receipt Date: 20080515
  Transmission Date: 20081010
  Serious: Yes (Other)
  Sender: FDA-Public Use
  Company Number: US-ELI_LILLY_AND_COMPANY-US200802004171

PATIENT
  Sex: Female

DRUGS (13)
  1. BYETTA [Suspect]
     Indication: TYPE 2 DIABETES MELLITUS
     Dosage: 5 UG, 2/D
     Dates: start: 20070824, end: 20071228
  2. PREMARIN [Concomitant]
     Indication: HORMONE REPLACEMENT THERAPY
     Dosage: 0.3 MG, UNK
     Route: 048
     Dates: start: 19930101
  3. MACRODANTIN [Concomitant]
     Indication: URINARY TRACT INFECTION
     Dosage: 50 MG, UNK
     Dates: start: 20060101
  4. ADVAIR DISKUS 100/50 [Concomitant]
     Indication: ASTHMA
  5. ZOLOFT [Concomitant]
     Indication: DEPRESSION
  6. ASPIRIN [Concomitant]
  7. OMEPRAZOLE [Concomitant]
     Indication: GASTROOESOPHAGEAL REFLUX DISEASE
     Dosage: 20 MG, UNK
  8. DETROL [Concomitant]
     Indication: URINARY INCONTINENCE
     Dosage: 4 MG, UNK
  9. ATENOLOL [Concomitant]
     Indication: HYPERTENSION
     Dosage: 50 MG, UNK
  10. BENICAR HCT [Concomitant]
     Indication: HYPERTENSION
  11. ALBUTEROL [Concomitant]
     Indication: ASTHMA
  12. METFORMIN HCL [Concomitant]
     Indication: TYPE 2 DIABETES MELLITUS
     Dosage: 500 MG, 3/D
  13. GLIPIZIDE [Concomitant]
     Indication: DIABETES MELLITUS
     Dosage: 10 MG, DAILY (1/D)

REACTIONS (5)
  - ERYTHEMA [None]
  - HYPERSENSITIVITY [None]
  - LOSS OF CONSCIOUSNESS [None]
  - PRURITUS [None]
  - URTICARIA [None]
